FAERS Safety Report 12431584 (Version 1)
Quarter: 2016Q2

REPORT INFORMATION
  Report Type: Spontaneous
  Country: FR (occurrence: FR)
  Receive Date: 20160603
  Receipt Date: 20160603
  Transmission Date: 20160815
  Serious: Yes (Hospitalization)
  Sender: FDA-Public Use
  Company Number: FR-009507513-1606FRA000996

PATIENT
  Age: 48 Year
  Sex: Female

DRUGS (1)
  1. ISENTRESS [Suspect]
     Active Substance: RALTEGRAVIR POTASSIUM
     Indication: HIV INFECTION
     Dosage: UNK
     Dates: start: 201505, end: 20160428

REACTIONS (1)
  - Major depression [Not Recovered/Not Resolved]

NARRATIVE: CASE EVENT DATE: 201505
